FAERS Safety Report 5338343-X (Version None)
Quarter: 2007Q2

REPORT INFORMATION
  Report Type: 
  Country: None (occurrence: None)
  Receive Date: 20070405
  Receipt Date: 20061116
  Transmission Date: 20071010
  Serious: No
  Sender: FDA-Public Use
  Company Number: US200611003142

PATIENT
  Age: 50 Year
  Sex: Female

DRUGS (1)
  1. CYMBALTA [Suspect]
     Indication: PAIN
     Dosage: 60 MG, DAILY (1/D)
     Dates: start: 20061101, end: 20061101

REACTIONS (2)
  - CHEST DISCOMFORT [None]
  - TACHYCARDIA [None]
